FAERS Safety Report 11323729 (Version 4)
Quarter: 2015Q4

REPORT INFORMATION
  Report Type: Spontaneous
  Country: US (occurrence: US)
  Receive Date: 20150730
  Receipt Date: 20151102
  Transmission Date: 20160304
  Serious: Yes (Other)
  Sender: FDA-Public Use
  Company Number: US-JNJFOC-20150719956

PATIENT
  Age: 51 Year
  Sex: Female
  Weight: 65.32 kg

DRUGS (2)
  1. REMICADE [Suspect]
     Active Substance: INFLIXIMAB
     Indication: CROHN^S DISEASE
     Dosage: ONCE 4 WEEKS AT THE RATE OF 125 ML/HR OVER 120 MINUTES. RECEIVED TOTAL MORE THAN 50 INFUSIONS.
     Route: 042
     Dates: start: 20080312, end: 20141209
  2. PAROXETINE [Concomitant]
     Active Substance: PAROXETINE\PAROXETINE HYDROCHLORIDE
     Indication: DEPRESSION
     Route: 048
     Dates: start: 201412

REACTIONS (2)
  - Breast cancer metastatic [Recovering/Resolving]
  - Invasive ductal breast carcinoma [Recovering/Resolving]

NARRATIVE: CASE EVENT DATE: 201412
